FAERS Safety Report 19167565 (Version 1)
Quarter: 2021Q2

REPORT INFORMATION
  Report Type: Spontaneous
  Country: US (occurrence: US)
  Receive Date: 20210422
  Receipt Date: 20210422
  Transmission Date: 20210717
  Serious: No
  Sender: FDA-Public Use
  Company Number: US-ORGANON-O2104USA001336

PATIENT
  Age: 63 Year
  Sex: Male
  Weight: 133.79 kg

DRUGS (2)
  1. SINEMET [Suspect]
     Active Substance: CARBIDOPA\LEVODOPA
     Dosage: 1 TABLET, TWICE A DAY (BID)
     Route: 048
  2. GOCOVRI [Suspect]
     Active Substance: AMANTADINE
     Dosage: 1 PILL, BID
     Dates: end: 20210308

REACTIONS (6)
  - Pain [Recovered/Resolved]
  - Pain in extremity [Unknown]
  - Joint stiffness [Unknown]
  - Arthralgia [Recovered/Resolved]
  - Dehydration [Recovered/Resolved]
  - Therapeutic product effect variable [Unknown]

NARRATIVE: CASE EVENT DATE: 202102
